FAERS Safety Report 5677108-6 (Version None)
Quarter: 2008Q1

REPORT INFORMATION
  Report Type: 
  Country: None (occurrence: None)
  Receive Date: 20080324
  Receipt Date: 20080324
  Transmission Date: 20080703
  Serious: Yes (Death, Hospitalization)
  Sender: FDA-Public Use
  Company Number: None

PATIENT
  Age: 85 Year
  Sex: Female

DRUGS (1)
  1. HEPARIN [Suspect]
     Indication: HOSPITALISATION
     Dates: start: 20071205, end: 20080205

REACTIONS (4)
  - NOSOCOMIAL INFECTION [None]
  - PHARMACEUTICAL PRODUCT COMPLAINT [None]
  - PNEUMONIA STAPHYLOCOCCAL [None]
  - RESPIRATORY DISTRESS [None]
